FAERS Safety Report 7458737-6 (Version None)
Quarter: 2011Q2

REPORT INFORMATION
  Report Type: 
  Country: None (occurrence: None)
  Receive Date: 20110504
  Receipt Date: 20110420
  Transmission Date: 20111010
  Serious: Yes (Other)
  Sender: FDA-Public Use
  Company Number: US-JNJFOC-20110409324

PATIENT
  Sex: Female
  Weight: 43.09 kg

DRUGS (1)
  1. REMICADE [Suspect]
     Indication: CROHN'S DISEASE
     Route: 042

REACTIONS (4)
  - THROAT TIGHTNESS [None]
  - INFUSION RELATED REACTION [None]
  - PHARYNGEAL OEDEMA [None]
  - MUSCULAR WEAKNESS [None]
